FAERS Safety Report 8556136-7 (Version None)
Quarter: 2012Q3

REPORT INFORMATION
  Report Type: 
  Country: None (occurrence: None)
  Receive Date: 20120801
  Receipt Date: 20120726
  Transmission Date: 20120928
  Serious: Yes (Other)
  Sender: FDA-Public Use
  Company Number: US-BAYER-2012-075498

PATIENT
  Age: 42 Year
  Sex: Female

DRUGS (7)
  1. BACLOFEN [Concomitant]
     Dosage: 10 MG, TAB
  2. ALPRAZOLAM [Concomitant]
     Dosage: 0.25 MG, TAB
  3. BETASERON [Suspect]
     Dosage: 0.25 MG, QOD
     Route: 058
  4. IBUPROFEN [Concomitant]
     Dosage: 200 MG, TAB
  5. VITAMIN D [Concomitant]
     Dosage: 1000 U, CAP
  6. IRON [Concomitant]
     Dosage: LIQ
  7. VITAMIN B-12 [Concomitant]
     Dosage: 1000 CR TAB

REACTIONS (3)
  - INCISION SITE INFECTION [None]
  - IMPAIRED HEALING [None]
  - SURGERY [None]
